FAERS Safety Report 4518451-3 (Version None)
Quarter: 2004Q4

REPORT INFORMATION
  Report Type: 
  Country: None (occurrence: None)
  Receive Date: 20041201
  Receipt Date: 20041118
  Transmission Date: 20050328
  Serious: Yes (Life-Threatening, Hospitalization, Other)
  Sender: FDA-Public Use
  Company Number: 2004-UK-01221UK

PATIENT
  Age: 72 Year
  Sex: Male

DRUGS (8)
  1. MOBIC [Suspect]
     Indication: OSTEOPOROSIS
     Dosage: 15 MG ONCE
     Route: 048
     Dates: end: 20040517
  2. MOBIC [Suspect]
     Indication: PAIN
     Dosage: 15 MG ONCE
     Route: 048
     Dates: end: 20040517
  3. ASPIRIN [Suspect]
     Indication: CARDIOVASCULAR DISORDER
     Dosage: 75 MG ONCE
     Route: 048
     Dates: end: 20040517
  4. ALLOPURINOL [Concomitant]
  5. PERINDOPRIL (PERINDOPRIL) [Concomitant]
  6. INDAPAMIDE [Concomitant]
  7. DILTIAZEM [Concomitant]
  8. LANSOPRAZOLE [Concomitant]

REACTIONS (4)
  - HAEMOGLOBIN DECREASED [None]
  - HYPOTENSION [None]
  - MELAENA [None]
  - UPPER GASTROINTESTINAL HAEMORRHAGE [None]
